FAERS Safety Report 5251448-7 (Version None)
Quarter: 2007Q1

REPORT INFORMATION
  Report Type: 
  Country: None (occurrence: None)
  Receive Date: 20070228
  Receipt Date: 20060519
  Transmission Date: 20070707
  Serious: No
  Sender: FDA-Public Use
  Company Number: US-GLAXOSMITHKLINE-A0605059A

PATIENT
  Age: 48 Year
  Sex: Female
  Weight: 72.7 kg

DRUGS (2)
  1. LAMICTAL [Suspect]
     Indication: BIPOLAR DISORDER
     Dosage: 25MG PER DAY
     Route: 048
     Dates: start: 20060414
  2. AMBIEN [Concomitant]
     Indication: INSOMNIA
     Dates: start: 20060414

REACTIONS (1)
  - DYSKINESIA [None]
